FAERS Safety Report 6568180-X (Version None)
Quarter: 2010Q1

REPORT INFORMATION
  Report Type: 
  Country: None (occurrence: None)
  Receive Date: 20100203
  Receipt Date: 20100129
  Transmission Date: 20100710
  Serious: Yes (Death)
  Sender: FDA-Public Use
  Company Number: FR-ROCHE-673549

PATIENT
  Sex: Male
  Weight: 80 kg

DRUGS (7)
  1. BLINDED BEVACIZUMAB [Suspect]
     Indication: GLIOBLASTOMA
     Dosage: LAST DATE PRIOR TO SAE 23 NOVEMBER 2009, FORM VIAL
     Route: 042
     Dates: start: 20091012
  2. TEMODAL [Suspect]
     Indication: GLIOBLASTOMA
     Dosage: LAST DATE PRIOR TO SAE 23 NOVEMBER 2009
     Route: 048
     Dates: start: 20091012
  3. NEXIUM [Concomitant]
     Dates: start: 20091106
  4. KEPPRA [Concomitant]
     Dates: start: 20090901
  5. URBANYL [Concomitant]
     Dates: start: 20090901
  6. MAALOX [Concomitant]
     Dates: start: 20091027, end: 20091028
  7. PARACETAMOL [Concomitant]
     Dates: start: 20091110, end: 20091110

REACTIONS (1)
  - CARDIOVASCULAR DISORDER [None]
